FAERS Safety Report 5343697-4 (Version None)
Quarter: 2007Q2

REPORT INFORMATION
  Report Type: 
  Country: None (occurrence: None)
  Receive Date: 20070604
  Receipt Date: 20070523
  Transmission Date: 20071010
  Serious: Yes (Hospitalization, Other)
  Sender: FDA-Public Use
  Company Number: US-JNJFOC-20070506888

PATIENT
  Sex: Male
  Weight: 117.94 kg

DRUGS (7)
  1. IBUPROFEN [Suspect]
     Indication: NECK PAIN
  2. IBUPROFEN [Suspect]
     Indication: ARTHRALGIA
     Dosage: 800 MG, 4-5 TIMES A DAY
  3. CELEBREX [Suspect]
     Indication: ARTHRALGIA
  4. DARVOCET [Concomitant]
     Indication: PAIN
  5. VICODIN [Concomitant]
     Indication: PAIN
  6. ASPIRIN [Concomitant]
  7. PREVACID [Concomitant]

REACTIONS (15)
  - BLOOD GLUCOSE ABNORMAL [None]
  - BRONCHITIS [None]
  - CARDIAC ARREST [None]
  - CHRONIC OBSTRUCTIVE PULMONARY DISEASE [None]
  - COMA [None]
  - DIZZINESS [None]
  - INCORRECT DOSE ADMINISTERED [None]
  - JOINT EFFUSION [None]
  - NARCOLEPSY [None]
  - NIGHT SWEATS [None]
  - OEDEMA PERIPHERAL [None]
  - PNEUMONIA [None]
  - PULMONARY OEDEMA [None]
  - RENAL FAILURE ACUTE [None]
  - WEIGHT INCREASED [None]
